FAERS Safety Report 10257602 (Version 1)
Quarter: 2014Q2

REPORT INFORMATION
  Report Type: Spontaneous
  Country: US (occurrence: US)
  Receive Date: 20140625
  Receipt Date: 20140625
  Transmission Date: 20141212
  Serious: Yes (Hospitalization, Other)
  Sender: FDA-Public Use
  Company Number: US-AMGEN INC.-USASP2014047058

PATIENT
  Age: 58 Year
  Sex: Female

DRUGS (2)
  1. ENBREL [Suspect]
     Indication: RHEUMATOID ARTHRITIS
     Dosage: UNK
     Route: 065
     Dates: start: 19981201
  2. REMICADE [Concomitant]
     Dosage: UNK

REACTIONS (7)
  - Pulmonary haemorrhage [Recovered/Resolved]
  - Body height decreased [Recovered/Resolved]
  - Rheumatoid arthritis [Unknown]
  - Bronchopulmonary aspergillosis [Recovered/Resolved]
  - Aspergillus infection [Recovered/Resolved]
  - Staphylococcal infection [Not Recovered/Not Resolved]
  - Sepsis [Recovered/Resolved]
